FAERS Safety Report 7733492-0 (Version None)
Quarter: 2011Q3

REPORT INFORMATION
  Report Type: 
  Country: None (occurrence: None)
  Receive Date: 20110901
  Receipt Date: 20110818
  Transmission Date: 20111222
  Serious: Yes (Hospitalization)
  Sender: FDA-Public Use
  Company Number: 1000023003

PATIENT
  Age: 86 Year
  Sex: Female

DRUGS (10)
  1. MEMANTINE HYDROCHLORIDE [Suspect]
     Dosage: 10 MG (10 MG,1 IN 1 D),ORAL
     Route: 048
     Dates: start: 20110525
  2. RAMIPRIL [Concomitant]
  3. PANADEINE CO (CODEINE PHOSPHATE, PARACETAMOL) (CODEINE PHOSPHATE, PARA [Concomitant]
  4. TRAMADOL HYDROCHLORIDE [Suspect]
     Dosage: 200 MG (100 MG,2 IN 1 D),ORAL
     Route: 048
     Dates: start: 20110609, end: 20110721
  5. KARDEGIC (ACETYLSALICYLATE LYSINE) (POWDER) (ACETYLSALICYLATE LYSINE) [Concomitant]
  6. PROTELOS (STRONTIUM RANELATE) (STRONTIUM RANELATE) [Concomitant]
  7. MIRTAZAPINE [Suspect]
     Dosage: 15 MG (15 MG,1 IN 1 D),ORAL
     Route: 048
     Dates: start: 20110525, end: 20110721
  8. LAMICTAL (LAMOTRIGINE) (TABLETS) (LAMOTRIGINE) [Concomitant]
  9. SOTALEX (SOTALOL HYDROCHLORIDE) (TABLETS) (SOTALOL HYDROCHLORIDE) [Concomitant]
  10. DOLIPRANE (PARACETAMOL) (PARACETAMOL) [Concomitant]

REACTIONS (10)
  - RALES [None]
  - PARTIAL SEIZURES WITH SECONDARY GENERALISATION [None]
  - OEDEMA PERIPHERAL [None]
  - BODY TEMPERATURE DECREASED [None]
  - BACK PAIN [None]
  - PAIN IN EXTREMITY [None]
  - ABDOMINAL PAIN UPPER [None]
  - DRUG INTERACTION [None]
  - AREFLEXIA [None]
  - CONSTIPATION [None]
